FAERS Safety Report 4839135-8 (Version None)
Quarter: 2005Q4

REPORT INFORMATION
  Report Type: 
  Country: None (occurrence: None)
  Receive Date: 20051031
  Receipt Date: 20050901
  Transmission Date: 20060501
  Serious: No
  Sender: FDA-Public Use
  Company Number: 200516621US

PATIENT
  Sex: Female

DRUGS (6)
  1. KETEK [Suspect]
     Dosage: PO
     Route: 048
     Dates: start: 20050830
  2. LAVENDER OIL [Concomitant]
  3. GINSENG [Concomitant]
  4. CHAMOMILE [Concomitant]
  5. PEPPERMINT OIL [Concomitant]
  6. MELATONIN [Concomitant]

REACTIONS (1)
  - SOMNOLENCE [None]
